FAERS Safety Report 5504277-0 (Version None)
Quarter: 2007Q4

REPORT INFORMATION
  Report Type: 
  Country: None (occurrence: None)
  Receive Date: 20071101
  Receipt Date: 20071022
  Transmission Date: 20080405
  Serious: Yes (Other)
  Sender: FDA-Public Use
  Company Number: CA-WYE-G00503407

PATIENT
  Sex: Male
  Weight: 88.3 kg

DRUGS (1)
  1. TEMSIROLIMUS [Suspect]
     Indication: RENAL CANCER METASTATIC
     Dosage: 25 MG Q WEEK
     Route: 042
     Dates: start: 20070925

REACTIONS (2)
  - HYPERSENSITIVITY [None]
  - MALAISE [None]
